FAERS Safety Report 15668622 (Version 1)
Quarter: 2018Q4

REPORT INFORMATION
  Report Type: Spontaneous
  Country: IL (occurrence: IL)
  Receive Date: 20181129
  Receipt Date: 20181129
  Transmission Date: 20190205
  Serious: Yes (Hospitalization, Other)
  Sender: FDA-Public Use
  Company Number: IL-ASTRAZENECA-2018SF54781

PATIENT
  Age: 72 Year
  Sex: Female

DRUGS (8)
  1. METFORMIN [Concomitant]
     Active Substance: METFORMIN HYDROCHLORIDE
  2. NIFEDILONG [Concomitant]
  3. ALLORIL [Concomitant]
  4. NOCTURNO [Concomitant]
  5. BRILINTA [Suspect]
     Active Substance: TICAGRELOR
     Dosage: 90.0MG UNKNOWN
     Route: 048
  6. TRITAC [Concomitant]
  7. ASPIRIN. [Concomitant]
     Active Substance: ASPIRIN
  8. OMEPRADEX [Concomitant]
     Active Substance: OMEPRAZOLE

REACTIONS (2)
  - Bronchospasm [Unknown]
  - Dyspnoea [Unknown]
